FAERS Safety Report 9501177 (Version 3)
Quarter: 2013Q4

REPORT INFORMATION
  Report Type: Spontaneous
  Country: AR (occurrence: AR)
  Receive Date: 20130905
  Receipt Date: 20131104
  Transmission Date: 20140711
  Serious: Yes (Other)
  Sender: FDA-Public Use
  Company Number: AR-AMGEN-ARGSP2013062346

PATIENT
  Age: 44 Year
  Sex: Female

DRUGS (3)
  1. ENBREL [Suspect]
     Indication: PSORIATIC ARTHROPATHY
     Dosage: 50 MG, WEEKLY
     Route: 058
     Dates: start: 20060222, end: 201305
  2. ENBREL [Suspect]
     Dosage: 25 MG, 2X/WEEK
     Route: 065
  3. METHOTREXATE SODIUM [Concomitant]
     Dosage: 7.5 MG, WEEKLY
     Route: 048

REACTIONS (3)
  - Drug effect decreased [Not Recovered/Not Resolved]
  - Uterine cancer [Recovered/Resolved]
  - Post procedural infection [Recovered/Resolved]
